FAERS Safety Report 9494311 (Version 2)
Quarter: 2013Q3

REPORT INFORMATION
  Report Type: Spontaneous
  Country: US (occurrence: US)
  Receive Date: 20130903
  Receipt Date: 20130918
  Transmission Date: 20140515
  Serious: Yes (Hospitalization, Disabling, Other)
  Sender: FDA-Public Use
  Company Number: US-JNJFOC-20130813457

PATIENT
  Age: 9 Decade
  Sex: Male

DRUGS (7)
  1. DOXORUBICIN HYDROCHLORIDE [Suspect]
     Indication: MANTLE CELL LYMPHOMA
     Route: 042
  2. CYCLOPHOSPHAMIDE [Suspect]
     Indication: MANTLE CELL LYMPHOMA
     Route: 065
  3. VINCRISTINE [Suspect]
     Indication: MANTLE CELL LYMPHOMA
     Route: 065
  4. DEXAMETHASONE [Suspect]
     Indication: MANTLE CELL LYMPHOMA
     Route: 065
  5. VELCADE [Suspect]
     Indication: MANTLE CELL LYMPHOMA
     Route: 065
  6. REVLIMID [Suspect]
     Indication: MANTLE CELL LYMPHOMA
     Route: 065
  7. THALIDOMIDE [Suspect]
     Indication: MANTLE CELL LYMPHOMA
     Route: 065

REACTIONS (6)
  - Transfusion [Unknown]
  - Emergency care [Unknown]
  - Fatigue [Unknown]
  - Neuropathy peripheral [Unknown]
  - Adverse drug reaction [Recovering/Resolving]
  - Platelet count decreased [Unknown]
